FAERS Safety Report 14342558 (Version 1)
Quarter: 2018Q1

REPORT INFORMATION
  Report Type: Spontaneous
  Country: JP (occurrence: JP)
  Receive Date: 20180102
  Receipt Date: 20180102
  Transmission Date: 20180509
  Serious: Yes (Hospitalization, Other)
  Sender: FDA-Public Use
  Company Number: JP-NOVOPROD-579532

PATIENT
  Age: 24 Year
  Sex: Male

DRUGS (7)
  1. NOVOLIN N [Suspect]
     Active Substance: INSULIN HUMAN
     Indication: TYPE 1 DIABETES MELLITUS
     Dosage: 52 U, QD
     Route: 058
     Dates: start: 1997
  2. NOVOLIN N [Suspect]
     Active Substance: INSULIN HUMAN
     Dosage: UNK
     Route: 058
  3. HUMAN INSULIN [Suspect]
     Active Substance: INSULIN HUMAN
     Dosage: 40 U, QD
     Route: 058
  4. HUMAN INSULIN [Suspect]
     Active Substance: INSULIN HUMAN
     Indication: TYPE 1 DIABETES MELLITUS
     Dosage: 52 U, QD
     Route: 058
     Dates: start: 1997
  5. HUMAN INSULIN [Suspect]
     Active Substance: INSULIN HUMAN
     Dosage: 144 U, QD
     Route: 058
     Dates: start: 199707
  6. TROGLITAZONE [Concomitant]
     Active Substance: TROGLITAZONE
     Dosage: UNK
     Dates: start: 20170728, end: 20170801
  7. NOVOLIN N [Suspect]
     Active Substance: INSULIN HUMAN
     Dosage: 40 U, QD
     Route: 058

REACTIONS (4)
  - Anti-insulin antibody positive [Recovered/Resolved]
  - Hypoglycaemia [Recovered/Resolved]
  - Hyperglycaemia [Recovered/Resolved]
  - Hepatic function abnormal [Unknown]

NARRATIVE: CASE EVENT DATE: 1997
